FAERS Safety Report 5393579-7 (Version None)
Quarter: 2007Q3

REPORT INFORMATION
  Report Type: 
  Country: None (occurrence: None)
  Receive Date: 20070723
  Receipt Date: 20060907
  Transmission Date: 20080115
  Serious: No
  Sender: FDA-Public Use
  Company Number: A0619399A

PATIENT
  Age: 40 Year
  Sex: Male

DRUGS (7)
  1. AVANDIA [Suspect]
     Dosage: 2MG TWICE PER DAY
     Route: 048
     Dates: start: 20030201
  2. METFORMIN HCL [Concomitant]
  3. LIPITOR [Concomitant]
  4. ALLEGRA [Concomitant]
  5. PERCOCET [Concomitant]
  6. IBUPROFEN [Concomitant]
  7. TRICOR [Concomitant]

REACTIONS (1)
  - DRUG INEFFECTIVE [None]
